FAERS Safety Report 4481360-2 (Version None)
Quarter: 2004Q4

REPORT INFORMATION
  Report Type: 
  Country: None (occurrence: None)
  Receive Date: 20041021
  Receipt Date: 20041014
  Transmission Date: 20050328
  Serious: Yes (Other)
  Sender: FDA-Public Use
  Company Number: GB-GLAXOSMITHKLINE-B0348204A

PATIENT
  Age: 68 Year
  Sex: Female

DRUGS (6)
  1. AVANDAMET [Suspect]
     Dosage: 2U UNKNOWN
     Route: 048
     Dates: start: 20040924, end: 20041005
  2. FUROSEMIDE [Concomitant]
     Dosage: 40MG PER DAY
     Route: 048
     Dates: start: 20040707
  3. ASPIRIN [Concomitant]
     Dosage: 75MG PER DAY
     Route: 048
     Dates: start: 20040707
  4. LOSARTAN POTASSIUM [Concomitant]
     Dosage: 100MG PER DAY
     Route: 048
     Dates: start: 20040707
  5. SIMVASTATIN [Concomitant]
     Dosage: 40MG PER DAY
     Route: 048
     Dates: start: 20040818
  6. AMLODIPINE [Concomitant]
     Dosage: 5MG PER DAY
     Route: 048

REACTIONS (3)
  - CARDIAC FAILURE [None]
  - DYSPNOEA [None]
  - EXERCISE TOLERANCE DECREASED [None]
